FAERS Safety Report 14314513 (Version 1)
Quarter: 2017Q4

REPORT INFORMATION
  Report Type: Spontaneous
  Country: GB (occurrence: GB)
  Receive Date: 20171221
  Receipt Date: 20171221
  Transmission Date: 20180321
  Serious: Yes (Life-Threatening)
  Sender: FDA-Public Use
  Company Number: GB-JNJFOC-20171226756

PATIENT
  Age: 79 Year
  Sex: Male

DRUGS (1)
  1. XARELTO [Suspect]
     Active Substance: RIVAROXABAN
     Indication: ATRIAL FIBRILLATION
     Route: 048
     Dates: start: 20171108, end: 20171123

REACTIONS (3)
  - Melaena [Recovering/Resolving]
  - Gastrointestinal haemorrhage [Unknown]
  - Gastritis [Unknown]

NARRATIVE: CASE EVENT DATE: 20171119
